FAERS Safety Report 13435464 (Version 13)
Quarter: 2019Q2

REPORT INFORMATION
  Report Type: Report from Study
  Country: US (occurrence: US)
  Receive Date: 20170413
  Receipt Date: 20190529
  Transmission Date: 20190711
  Serious: Yes (Other)
  Sender: FDA-Public Use
  Company Number: US-PFIZER INC-2017100196

PATIENT
  Age: 59 Year
  Sex: Female
  Weight: 98.41 kg

DRUGS (8)
  1. BOSULIF [Suspect]
     Active Substance: BOSUTINIB MONOHYDRATE
     Indication: CHRONIC MYELOID LEUKAEMIA
     Dosage: 400 MG, DAILY (FOUR CAPSULES DAILY)
     Route: 048
     Dates: start: 20170304
  2. BOSULIF [Suspect]
     Active Substance: BOSUTINIB MONOHYDRATE
     Dosage: 400 MG, DAILY (FOUR CAPSULES DAILY)
     Route: 048
  3. BOSULIF [Suspect]
     Active Substance: BOSUTINIB MONOHYDRATE
     Dosage: 400 MG, DAILY (100 MG CAPSULES, 4 DAILY)
     Route: 048
  4. BOSULIF [Suspect]
     Active Substance: BOSUTINIB MONOHYDRATE
     Dosage: 400 MG, DAILY (100 MG CAPSULES, 4 DAILY)
     Route: 048
  5. BOSULIF [Suspect]
     Active Substance: BOSUTINIB MONOHYDRATE
     Dosage: 400 MG, DAILY (4 TABLETS DAILY)
     Route: 048
  6. BOSULIF [Suspect]
     Active Substance: BOSUTINIB MONOHYDRATE
     Dosage: 400 MG, DAILY (FOUR CAPSULES DAILY)
     Route: 048
  7. BOSULIF [Suspect]
     Active Substance: BOSUTINIB MONOHYDRATE
     Dosage: 100 MG, CYCLIC(DAY 1-30 EVERY 30 DAYS)
     Route: 048
  8. BOSULIF [Suspect]
     Active Substance: BOSUTINIB MONOHYDRATE
     Dosage: 400 MG, DAILY (FOUR CAPSULES DAILY)
     Route: 048

REACTIONS (36)
  - Diarrhoea haemorrhagic [Not Recovered/Not Resolved]
  - Blood pressure fluctuation [Not Recovered/Not Resolved]
  - Constipation [Not Recovered/Not Resolved]
  - Pain in extremity [Unknown]
  - Fungal infection [Unknown]
  - Anaemia [Unknown]
  - Platelet count increased [Unknown]
  - Decreased appetite [Unknown]
  - Faeces discoloured [Unknown]
  - Sneezing [Unknown]
  - Blood iron decreased [Unknown]
  - Nausea [Recovering/Resolving]
  - Vomiting [Not Recovered/Not Resolved]
  - Red cell distribution width decreased [Unknown]
  - Snoring [Unknown]
  - Weight decreased [Recovering/Resolving]
  - Ocular hyperaemia [Not Recovered/Not Resolved]
  - Pain [Unknown]
  - Blood pressure fluctuation [Unknown]
  - Gastritis bacterial [Not Recovered/Not Resolved]
  - Photophobia [Not Recovered/Not Resolved]
  - Lacrimation increased [Unknown]
  - Eye pain [Unknown]
  - Hypersensitivity [Unknown]
  - Joint swelling [Unknown]
  - Product dose omission [Unknown]
  - Chest pain [Not Recovered/Not Resolved]
  - Malaise [Recovering/Resolving]
  - Intentional product misuse [Unknown]
  - Dry mouth [Not Recovered/Not Resolved]
  - Rash [Not Recovered/Not Resolved]
  - Dry eye [Unknown]
  - Oedema [Not Recovered/Not Resolved]
  - Paranasal sinus hypersecretion [Unknown]
  - Fatigue [Unknown]
  - Gastrooesophageal reflux disease [Unknown]

NARRATIVE: CASE EVENT DATE: 20170322
